FAERS Safety Report 5060455-9 (Version None)
Quarter: 2006Q3

REPORT INFORMATION
  Report Type: 
  Country: None (occurrence: None)
  Receive Date: 20060720
  Receipt Date: 20060713
  Transmission Date: 20061208
  Serious: Yes (Hospitalization)
  Sender: FDA-Public Use
  Company Number: 2006-02911

PATIENT
  Age: 78 Year
  Sex: Female

DRUGS (1)
  1. ACETAMINOPHEN AND HYDROCODONE BITARTRATE [Suspect]
     Indication: BACK PAIN
     Dosage: 1 - 2 TABS Q6H (15 TABS TAKEN), ORAL
     Route: 048
     Dates: start: 20060401, end: 20060101

REACTIONS (10)
  - APNOEA [None]
  - CHOKING SENSATION [None]
  - DRUG INEFFECTIVE [None]
  - INSOMNIA [None]
  - NAUSEA [None]
  - PHARMACEUTICAL PRODUCT COMPLAINT [None]
  - POOR QUALITY DRUG ADMINISTERED [None]
  - SPINAL COLUMN STENOSIS [None]
  - THERAPEUTIC PRODUCT CONTAMINATION [None]
  - WEIGHT DECREASED [None]
